FAERS Safety Report 11561668 (Version 1)
Quarter: 2015Q3

REPORT INFORMATION
  Report Type: Spontaneous
  Country: US (occurrence: US)
  Receive Date: 20150916
  Receipt Date: 20150916
  Transmission Date: 20151125
  Serious: No
  Sender: FDA-Public Use
  Company Number: US-ELI_LILLY_AND_COMPANY-US200811001236

PATIENT
  Age: 81 Year
  Sex: Female

DRUGS (10)
  1. COUMADIN [Concomitant]
     Active Substance: WARFARIN SODIUM
  2. DIGOXIN. [Concomitant]
     Active Substance: DIGOXIN
  3. FISH OIL [Concomitant]
     Active Substance: FISH OIL
  4. FORTEO [Suspect]
     Active Substance: TERIPARATIDE
     Indication: MULTIPLE FRACTURES
     Dosage: 20 UG, DAILY (1/D)
     Dates: start: 20081009
  5. CALCIUM W/VITAMIN D /00944201/ [Concomitant]
  6. DIOVAN /01319601/ [Concomitant]
  7. CARDIZEM [Concomitant]
     Active Substance: DILTIAZEM HYDROCHLORIDE
  8. STOOL SOFTENER [Concomitant]
     Active Substance: DOCUSATE CALCIUM
  9. HYDROCHLOROTHIAZIDE. [Concomitant]
     Active Substance: HYDROCHLOROTHIAZIDE
  10. FLORISAN [Concomitant]

REACTIONS (3)
  - Arthralgia [Recovering/Resolving]
  - Back pain [Recovering/Resolving]
  - Atrial fibrillation [Unknown]

NARRATIVE: CASE EVENT DATE: 20081005
